FAERS Safety Report 4673237-4 (Version None)
Quarter: 2005Q2

REPORT INFORMATION
  Report Type: 
  Country: None (occurrence: None)
  Receive Date: 20050525
  Receipt Date: 20050518
  Transmission Date: 20051028
  Serious: Yes (Death, Hospitalization)
  Sender: FDA-Public Use
  Company Number: 200514533GDDC

PATIENT
  Age: 72 Year
  Sex: Male

DRUGS (7)
  1. CLEXANE [Suspect]
     Indication: ACUTE MYOCARDIAL INFARCTION
     Route: 058
     Dates: start: 20040407, end: 20040426
  2. ADIRO [Suspect]
     Indication: ACUTE MYOCARDIAL INFARCTION
     Route: 048
     Dates: start: 20040407, end: 20040426
  3. METALYSE [Suspect]
     Dates: start: 20040426, end: 20040426
  4. UNIKET [Concomitant]
     Route: 048
     Dates: start: 20040407, end: 20040426
  5. TENORMIN [Concomitant]
     Route: 048
     Dates: start: 20040407, end: 20040426
  6. PREVENCOR [Concomitant]
     Route: 048
     Dates: start: 20040407, end: 20040426
  7. PROSCAR [Concomitant]
     Route: 048
     Dates: start: 20040101

REACTIONS (2)
  - CEREBRAL HAEMORRHAGE [None]
  - METASTASES TO LUNG [None]
